FAERS Safety Report 7512220-8 (Version None)
Quarter: 2011Q2

REPORT INFORMATION
  Report Type: 
  Country: None (occurrence: None)
  Receive Date: 20110531
  Receipt Date: 20110124
  Transmission Date: 20111010
  Serious: Yes (Other)
  Sender: FDA-Public Use
  Company Number: US-BAYER-201037649NA

PATIENT
  Age: 15 Year
  Sex: Female
  Weight: 55 kg

DRUGS (8)
  1. AMITIZA [Concomitant]
  2. VIRAL VACCINES [Concomitant]
  3. PROTONIX [Concomitant]
  4. YAZ [Suspect]
     Indication: MENSTRUAL DISORDER
     Route: 048
     Dates: start: 20061001, end: 20070615
  5. YAZ [Suspect]
     Indication: ABDOMINAL PAIN
     Dosage: UNK
     Route: 048
     Dates: start: 20090101, end: 20090501
  6. PREVACID [Concomitant]
  7. NEXIUM [Concomitant]
  8. PHENERGAN AND CHLORAL HYDRATE [Concomitant]

REACTIONS (6)
  - GALLBLADDER DISORDER [None]
  - DEPRESSION [None]
  - NAUSEA [None]
  - ANXIETY [None]
  - ABDOMINAL PAIN [None]
  - CHOLECYSTITIS CHRONIC [None]
